FAERS Safety Report 16707521 (Version 1)
Quarter: 2019Q3

REPORT INFORMATION
  Report Type: Spontaneous
  Country: US (occurrence: US)
  Receive Date: 20190815
  Receipt Date: 20190815
  Transmission Date: 20191004
  Serious: No
  Sender: FDA-Public Use
  Company Number: US-MYLANLABS-2019M1072893

PATIENT
  Sex: Male

DRUGS (1)
  1. TADALAFIL TABLETS USP [Suspect]
     Active Substance: TADALAFIL
     Dosage: UNK
     Route: 048

REACTIONS (3)
  - Off label use [Unknown]
  - Wrong technique in product usage process [Unknown]
  - Muscle spasms [Unknown]
